FAERS Safety Report 21461455 (Version 1)
Quarter: 2022Q4

REPORT INFORMATION
  Report Type: Report from Study
  Country: US (occurrence: US)
  Receive Date: 20221015
  Receipt Date: 20221015
  Transmission Date: 20230112
  Serious: No
  Sender: FDA-Public Use
  Company Number: US-ABBVIE-4133053

PATIENT
  Sex: Female

DRUGS (4)
  1. RINVOQ [Suspect]
     Active Substance: UPADACITINIB
     Indication: Rheumatoid arthritis
     Route: 048
  2. Pfizer/BioNTech Covid-19 [Concomitant]
     Indication: COVID-19 immunisation
     Dosage: 1 IN ONCE (FIRST DOSE)
     Route: 030
     Dates: start: 2021, end: 2021
  3. Pfizer/BioNTech Covid-19 [Concomitant]
     Indication: COVID-19 immunisation
     Dosage: 1 IN ONCE (SECOND DOSE)
     Route: 030
     Dates: start: 2021, end: 2021
  4. Pfizer/BioNTech Covid-19 [Concomitant]
     Indication: COVID-19 immunisation
     Dosage: 1 IN ONCE (THIRD DOSE)
     Route: 030
     Dates: start: 202207, end: 202207

REACTIONS (2)
  - Pain in extremity [Not Recovered/Not Resolved]
  - Radiculopathy [Not Recovered/Not Resolved]
